FAERS Safety Report 17733696 (Version 2)
Quarter: 2020Q3

REPORT INFORMATION
  Report Type: Spontaneous
  Country: US (occurrence: US)
  Receive Date: 20200501
  Receipt Date: 20200818
  Transmission Date: 20201102
  Serious: Yes (Hospitalization, Other)
  Sender: FDA-Public Use
  Company Number: NVSC2020US117337

PATIENT
  Age: 36 Year
  Sex: Male
  Weight: 54 kg

DRUGS (5)
  1. ADAKVEO [Suspect]
     Active Substance: CRIZANLIZUMAB-TMCA
     Dosage: 270 MG, QMO (5 MG/KG OVER 30 MINUTES)
     Route: 042
     Dates: start: 20200422, end: 20200422
  2. TORADOL [Concomitant]
     Active Substance: KETOROLAC TROMETHAMINE
     Indication: PRODUCT USED FOR UNKNOWN INDICATION
     Dosage: 30 MG
     Route: 065
  3. OXYCONTIN [Concomitant]
     Active Substance: OXYCODONE HYDROCHLORIDE
     Indication: PAIN
     Dosage: UNK
     Route: 065
  4. ADAKVEO [Suspect]
     Active Substance: CRIZANLIZUMAB-TMCA
     Indication: SICKLE CELL ANAEMIA WITH CRISIS
     Dosage: 270 MG, QMO (5 MG/KG OVER 30 MINUTES)
     Route: 042
     Dates: start: 20200205
  5. NACL [Concomitant]
     Active Substance: SODIUM CHLORIDE
     Indication: PRODUCT USED FOR UNKNOWN INDICATION
     Dosage: 1 L (500ML/HR)
     Route: 042

REACTIONS (7)
  - Hypertensive crisis [Unknown]
  - Chest pain [Recovered/Resolved]
  - Epilepsy [Unknown]
  - Sickle cell anaemia with crisis [Recovered/Resolved]
  - Hypothermia [Unknown]
  - Back pain [Recovered/Resolved]
  - Anaemia [Recovered/Resolved]

NARRATIVE: CASE EVENT DATE: 20200424
